FAERS Safety Report 26068608 (Version 1)
Quarter: 2025Q4

REPORT INFORMATION
  Report Type: Spontaneous
  Country: GB (occurrence: GB)
  Receive Date: 20251120
  Receipt Date: 20251120
  Transmission Date: 20260118
  Serious: Yes (Hospitalization)
  Sender: MACLEODS
  Company Number: GB-MACLEODS PHARMA-MAC2025056459

PATIENT

DRUGS (12)
  1. LEVOTHYROXINE [Suspect]
     Active Substance: LEVOTHYROXINE
     Indication: Graves^ disease
     Route: 065
  2. LEVOTHYROXINE [Suspect]
     Active Substance: LEVOTHYROXINE
     Route: 065
  3. LEVOTHYROXINE [Suspect]
     Active Substance: LEVOTHYROXINE
     Route: 065
  4. CARBIMAZOLE [Suspect]
     Active Substance: CARBIMAZOLE
     Indication: Graves^ disease
     Route: 065
  5. CARBIMAZOLE [Suspect]
     Active Substance: CARBIMAZOLE
     Route: 065
  6. CARBIMAZOLE [Suspect]
     Active Substance: CARBIMAZOLE
     Route: 065
  7. CARBIMAZOLE [Suspect]
     Active Substance: CARBIMAZOLE
     Route: 065
  8. AMLODIPINE [Concomitant]
     Active Substance: AMLODIPINE BESYLATE
     Indication: Product used for unknown indication
     Route: 065
  9. PERINDOPRIL [Concomitant]
     Active Substance: PERINDOPRIL
     Indication: Product used for unknown indication
     Route: 065
  10. APIXABAN [Concomitant]
     Active Substance: APIXABAN
     Indication: Product used for unknown indication
     Route: 065
  11. BUMETANIDE [Concomitant]
     Active Substance: BUMETANIDE
     Indication: Product used for unknown indication
     Route: 065
  12. SIMVASTATIN [Concomitant]
     Active Substance: SIMVASTATIN
     Indication: Product used for unknown indication
     Route: 065

REACTIONS (7)
  - Hypothyroidism [Recovered/Resolved]
  - Hyperthyroidism [Recovered/Resolved]
  - Cardiac failure [Recovered/Resolved]
  - Cellulitis [Unknown]
  - Bradycardia [Recovered/Resolved]
  - Thyroid dermatopathy [Recovered/Resolved]
  - Fall [Recovered/Resolved]
